FAERS Safety Report 24634702 (Version 3)
Quarter: 2025Q1

REPORT INFORMATION
  Report Type: Report from Study
  Country: JP (occurrence: JP)
  Receive Date: 20241119
  Receipt Date: 20250325
  Transmission Date: 20250409
  Serious: Yes (Hospitalization, Congenital Anomaly, Other)
  Sender: ALEXION PHARMACEUTICALS
  Company Number: JP-ASTRAZENECA-230017772_011820_P_1

PATIENT
  Age: 17 Year
  Weight: 53.2 kg

DRUGS (5)
  1. KOSELUGO [Suspect]
     Active Substance: SELUMETINIB
     Indication: Neurofibroma
     Dosage: 40 MILLIGRAM, BID
  2. KOSELUGO [Suspect]
     Active Substance: SELUMETINIB
     Dosage: 40 MILLIGRAM, BID
  3. KOSELUGO [Suspect]
     Active Substance: SELUMETINIB
     Dosage: 40 MILLIGRAM, BID
  4. KOSELUGO [Suspect]
     Active Substance: SELUMETINIB
  5. KOSELUGO [Suspect]
     Active Substance: SELUMETINIB

REACTIONS (2)
  - Moyamoya disease [Recovered/Resolved]
  - Ejection fraction decreased [Recovering/Resolving]
